FAERS Safety Report 5619542-6 (Version None)
Quarter: 2008Q1

REPORT INFORMATION
  Report Type: 
  Country: None (occurrence: None)
  Receive Date: 20080114
  Receipt Date: 20061121
  Transmission Date: 20080703
  Serious: Yes (Hospitalization)
  Sender: FDA-Public Use
  Company Number: A03200606993

PATIENT
  Age: 66 Year
  Sex: Female

DRUGS (8)
  1. PLAVIX [Suspect]
     Indication: MYOCARDIAL INFARCTION
     Dosage: LOADING DOSE OF 300MG FOLLOWED BY 75MG QD. - ORAL
     Route: 048
     Dates: start: 20040601, end: 20040801
  2. DIGOXIN [Concomitant]
  3. METOPROLOL TARTRATE [Concomitant]
  4. VENLAFAXINE HCL [Concomitant]
  5. FUROSEMIDE [Concomitant]
  6. SIMVASTATIN [Concomitant]
  7. INSULIN [Concomitant]
  8. ACETYLSALICYLIC ACID SRT [Concomitant]

REACTIONS (2)
  - CORONARY ARTERY THROMBOSIS [None]
  - THROMBOTIC THROMBOCYTOPENIC PURPURA [None]
